FAERS Safety Report 11751435 (Version 1)
Quarter: 2015Q4

REPORT INFORMATION
  Report Type: Spontaneous
  Country: US (occurrence: US)
  Receive Date: 20151118
  Receipt Date: 20151118
  Transmission Date: 20160304
  Serious: Yes (Hospitalization)
  Sender: FDA-Public Use
  Company Number: US-NOVOPROD-421307

PATIENT
  Age: 54 Year
  Sex: Female
  Weight: 68.58 kg

DRUGS (4)
  1. NOVOLOG [Suspect]
     Active Substance: INSULIN ASPART
     Indication: TYPE 1 DIABETES MELLITUS
     Dosage: 2 UNITS PER 10 GM OF CARBOHYDRATES
     Route: 058
     Dates: start: 1984
  2. NOVOLOG [Suspect]
     Active Substance: INSULIN ASPART
     Dosage: 1 UNIT FOR EVERY 50 OVER 200
     Route: 058
     Dates: start: 1984
  3. NOVOLOG [Suspect]
     Active Substance: INSULIN ASPART
     Dosage: 4 U, SINGLE
     Route: 058
     Dates: start: 20140824, end: 20140824
  4. LANTUS [Concomitant]
     Active Substance: INSULIN GLARGINE
     Indication: TYPE 1 DIABETES MELLITUS
     Dosage: 14 U, QD AT BEDTIME
     Route: 058
     Dates: start: 199912

REACTIONS (2)
  - Blood glucose increased [Unknown]
  - Hypoglycaemic seizure [Recovered/Resolved]

NARRATIVE: CASE EVENT DATE: 20140824
